FAERS Safety Report 9358201 (Version 1)
Quarter: 2013Q2

REPORT INFORMATION
  Report Type: Spontaneous
  Country: US (occurrence: None)
  Receive Date: 20130619
  Receipt Date: 20130619
  Transmission Date: 20140414
  Serious: No
  Sender: FDA-Public Use
  Company Number: None

PATIENT
  Age: 74 Year
  Sex: Male

DRUGS (6)
  1. ZYTIGA [Suspect]
     Indication: PROSTATE CANCER
     Route: 048
     Dates: start: 20130604
  2. PREDNISONE [Concomitant]
  3. LUPRON [Concomitant]
  4. CASODEX [Concomitant]
  5. CARDURA [Concomitant]
  6. ASPIRIN [Concomitant]

REACTIONS (1)
  - Muscle spasms [None]
